FAERS Safety Report 9479051 (Version 3)
Quarter: 2014Q2

REPORT INFORMATION
  Report Type: Report from Study
  Country: JP (occurrence: JP)
  Receive Date: 20130827
  Receipt Date: 20140508
  Transmission Date: 20141212
  Serious: Yes (Death, Life-Threatening, Other)
  Sender: FDA-Public Use
  Company Number: JP-AMGEN-JPNCT2013060314

PATIENT
  Age: 87 Year
  Sex: Male
  Weight: 42 kg

DRUGS (17)
  1. ROMIPLATE [Suspect]
     Indication: IMMUNE THROMBOCYTOPENIC PURPURA
     Dosage: 1 MUG/KG, QD
     Route: 058
     Dates: start: 20120627, end: 20120627
  2. PREDONINE [Concomitant]
     Indication: IMMUNE THROMBOCYTOPENIC PURPURA
     Dosage: 15 MG, UNK
     Route: 048
     Dates: start: 20120613, end: 20120629
  3. LASIX [Concomitant]
     Indication: HYPERTENSION
     Dosage: 20 MG, UNK
     Route: 048
     Dates: start: 20120620, end: 20120629
  4. MAINROL [Concomitant]
     Indication: HYPERTENSION
     Dosage: 2.5 MG, UNK
     Route: 048
     Dates: start: 20120620, end: 20120629
  5. TAKEPRON [Concomitant]
     Indication: PROPHYLAXIS AGAINST GASTROINTESTINAL ULCER
     Dosage: 15 MG, UNK
     Route: 048
     Dates: start: 20120620, end: 20120629
  6. REBAMIPIDE [Concomitant]
     Indication: PROPHYLAXIS
     Dosage: 300 MG, UNK
     Route: 048
     Dates: start: 20120620, end: 20120629
  7. URSO [Concomitant]
     Indication: CHRONIC HEPATITIS
     Dosage: 600 MG, UNK
     Route: 048
     Dates: start: 20120620, end: 20120629
  8. BAKTAR [Concomitant]
     Indication: PROPHYLAXIS
     Dosage: 2 G, UNK
     Route: 048
     Dates: start: 20120620, end: 20120629
  9. FLUCONAZOLE [Concomitant]
     Indication: PROPHYLAXIS
     Dosage: 100 MG, UNK
     Route: 048
     Dates: start: 20120620, end: 20120626
  10. MEMARY [Concomitant]
     Indication: DEMENTIA
     Dosage: 10 MG, UNK
     Route: 048
     Dates: start: 20120620, end: 20120629
  11. REVOLADE [Concomitant]
     Indication: IMMUNE THROMBOCYTOPENIC PURPURA
     Dosage: 50 MG, UNK
     Route: 048
     Dates: start: 20120620, end: 20120626
  12. MAGLAX [Concomitant]
     Indication: CONSTIPATION
     Dosage: 990 MG, UNK
     Route: 048
     Dates: start: 20120621, end: 20120629
  13. WARFARIN [Concomitant]
     Indication: VENOUS THROMBOSIS
     Dosage: 0.25 MG, UNK
     Route: 048
     Dates: start: 20120622, end: 20120629
  14. PRONON [Concomitant]
     Indication: ARRHYTHMIA
     Dosage: 150 MG, UNK
     Route: 048
     Dates: start: 20120622, end: 20120629
  15. MAXIPIME [Concomitant]
     Indication: INFECTION
     Dosage: 2000 MG, UNK
     Route: 065
     Dates: start: 20120625, end: 20120629
  16. MORPHINE HYDROCHLORIDE TRIHYDRATE [Concomitant]
     Indication: IMMUNE THROMBOCYTOPENIC PURPURA
     Dosage: 10 MG, UNK
     Route: 065
     Dates: start: 20120626, end: 20120629
  17. ANCARON [Concomitant]
     Indication: ATRIAL FIBRILLATION
     Dosage: 37.5 MG, UNK
     Route: 048
     Dates: start: 20120627, end: 20120627

REACTIONS (2)
  - Platelet count decreased [Fatal]
  - Pneumonia aspiration [Fatal]
